FAERS Safety Report 13229271 (Version 1)
Quarter: 2017Q1

REPORT INFORMATION
  Report Type: Spontaneous
  Country: US (occurrence: US)
  Receive Date: 20170213
  Receipt Date: 20170213
  Transmission Date: 20170428
  Serious: No
  Sender: FDA-Public Use
  Company Number: None

PATIENT
  Sex: Female
  Weight: 58.5 kg

DRUGS (2)
  1. THE ORIGINAL NATURAL HERB COUGH DROPS [Concomitant]
     Active Substance: MENTHOL
  2. ROBITUSSIN MAXIMUM STRENGTH COUGH PLUS CHEST CONGESTION DM [Suspect]
     Active Substance: DEXTROMETHORPHAN HYDROBROMIDE\GUAIFENESIN
     Indication: NASOPHARYNGITIS
     Dosage: ?          QUANTITY:20 ML;?
     Route: 048
     Dates: start: 20170208, end: 20170210

REACTIONS (2)
  - Contusion [None]
  - Burning sensation [None]
